FAERS Safety Report 26160454 (Version 1)
Quarter: 2025Q4

REPORT INFORMATION
  Report Type: Spontaneous
  Country: US (occurrence: US)
  Receive Date: 20251216
  Receipt Date: 20251216
  Transmission Date: 20260117
  Serious: No
  Sender: ALVOGEN
  Company Number: US-ALVOGEN-2025096390

PATIENT
  Age: 58 Year
  Sex: Male

DRUGS (5)
  1. FENTANYL [Suspect]
     Active Substance: FENTANYL
     Indication: Cancer pain
     Dosage: STRENGTH: 25MCG/HR; EXPIRATION DATE: 15-JAN-2026?11:00 O^CLOCK IN THE MORNING
     Route: 062
     Dates: start: 20250115
  2. MORPHINE [Concomitant]
     Active Substance: MORPHINE
     Indication: Pain management
     Dosage: EXTENDED RELEASE; IN THE MORNING
  3. METHOCARBAMOL [Concomitant]
     Active Substance: METHOCARBAMOL
     Indication: Muscle spasms
     Dosage: AS NEEDED
  4. TYLENOL [Concomitant]
     Active Substance: ACETAMINOPHEN
     Indication: Pain management
     Dosage: QUIT TAKING
  5. HYDROXYZINE [Concomitant]
     Active Substance: HYDROXYZINE HYDROCHLORIDE
     Indication: Anxiety

REACTIONS (9)
  - Eating disorder [Unknown]
  - Speech disorder [Unknown]
  - Performance status decreased [Unknown]
  - Staring [Unknown]
  - Dysphagia [Unknown]
  - Aphasia [Unknown]
  - Dysstasia [Unknown]
  - Hypersomnia [Unknown]
  - Malaise [Unknown]

NARRATIVE: CASE EVENT DATE: 20250115
